FAERS Safety Report 24883948 (Version 2)
Quarter: 2025Q4

REPORT INFORMATION
  Report Type: Report from Study
  Country: US (occurrence: US)
  Receive Date: 20250124
  Receipt Date: 20251009
  Transmission Date: 20260117
  Serious: Yes (Death, Other)
  Sender: JOHNSON AND JOHNSON
  Company Number: US-JNJFOC-20250156293

PATIENT
  Age: 68 Year
  Sex: Female

DRUGS (1)
  1. CILTACABTAGENE AUTOLEUCEL [Suspect]
     Active Substance: CILTACABTAGENE AUTOLEUCEL
     Indication: Plasma cell myeloma
     Dosage: ENTIRE VOLUME OF PRODUCT INFUSED.  TOTAL NUMBER OF CELLS ADMINISTERED WERE 0.6. TOTAL CELLS EXPONENT
     Route: 065
     Dates: start: 2023, end: 2023

REACTIONS (3)
  - Neoplasm malignant [Fatal]
  - Respiratory failure [Fatal]
  - Acute myeloid leukaemia [Unknown]
